FAERS Safety Report 10200140 (Version 1)
Quarter: 2014Q2

REPORT INFORMATION
  Report Type: Spontaneous
  Country: US (occurrence: US)
  Receive Date: 20140527
  Receipt Date: 20140527
  Transmission Date: 20141212
  Serious: Yes (Death, Other)
  Sender: FDA-Public Use
  Company Number: US-MYLANLABS-2014S1011488

PATIENT
  Age: 57 Year
  Sex: Male

DRUGS (2)
  1. MERCAPTOPURINE [Suspect]
     Indication: CROHN^S DISEASE
     Dosage: DAILY
     Route: 065
  2. MERCAPTOPURINE [Suspect]
     Indication: OFF LABEL USE
     Dosage: DAILY
     Route: 065

REACTIONS (2)
  - Small intestine adenocarcinoma [Fatal]
  - Skin cancer [Not Recovered/Not Resolved]
